FAERS Safety Report 4766386-3 (Version None)
Quarter: 2005Q3

REPORT INFORMATION
  Report Type: 
  Country: None (occurrence: None)
  Receive Date: 20050909
  Receipt Date: 20050901
  Transmission Date: 20060218
  Serious: Yes (Hospitalization)
  Sender: FDA-Public Use
  Company Number: 2005-03269

PATIENT
  Age: 29 Year
  Sex: Female

DRUGS (1)
  1. TRELSTAR DEPOT [Suspect]
     Indication: FIBROMA
     Dosage: 3 MG, Q 28 DAYS, INTRAMUSCULAR
     Route: 030
     Dates: start: 20050630, end: 20050630

REACTIONS (6)
  - AUTOIMMUNE HEPATITIS [None]
  - CHOLECYSTITIS [None]
  - CYTOLYTIC HEPATITIS [None]
  - HEPATITIS VIRAL [None]
  - LABILE HYPERTENSION [None]
  - SINUS BRADYCARDIA [None]
